FAERS Safety Report 17912740 (Version 1)
Quarter: 2020Q2

REPORT INFORMATION
  Report Type: Spontaneous
  Country: US (occurrence: US)
  Receive Date: 20200618
  Receipt Date: 20200618
  Transmission Date: 20200714
  Serious: Yes (Other)
  Sender: FDA-Public Use
  Company Number: US-SHIRE-US202019807

PATIENT
  Sex: Female

DRUGS (1)
  1. GATTEX [Suspect]
     Active Substance: TEDUGLUTIDE\WATER
     Indication: PRODUCT USED FOR UNKNOWN INDICATION
     Dosage: 0.300 UNK, 1X/DAY:QD
     Route: 058
     Dates: start: 20171004

REACTIONS (2)
  - Retinal artery occlusion [Recovered/Resolved]
  - Inappropriate schedule of product administration [Recovered/Resolved]
